FAERS Safety Report 7878558-X (Version None)
Quarter: 2011Q4

REPORT INFORMATION
  Report Type: 
  Country: None (occurrence: None)
  Receive Date: 20111014
  Receipt Date: 20110707
  Transmission Date: 20120403
  Serious: Yes (Hospitalization)
  Sender: FDA-Public Use
  Company Number: 1000022068

PATIENT
  Sex: Female

DRUGS (2)
  1. ZOLOFT [Suspect]
  2. LEXAPRO [Suspect]

REACTIONS (1)
  - HYPOMANIA [None]
